FAERS Safety Report 4392366-6 (Version None)
Quarter: 2004Q3

REPORT INFORMATION
  Report Type: 
  Country: None (occurrence: None)
  Receive Date: 20040702
  Receipt Date: 20040622
  Transmission Date: 20050211
  Serious: Yes (Other)
  Sender: FDA-Public Use
  Company Number: 2004-02870

PATIENT
  Age: 70 Year
  Sex: Female

DRUGS (3)
  1. GEMFIBROZIL [Suspect]
     Dosage: ORAL
     Route: 048
  2. ENALEPRIL MALEATE (WATSON LABORATORIES) (ENALAPRIL MALEATE) TABLET, 2. [Suspect]
  3. DICLOFENAC (WATSON LABORATORIES) (DICLOFENAC POTASSIUM) TABLET, 50 MG [Suspect]

REACTIONS (1)
  - RHABDOMYOLYSIS [None]
